FAERS Safety Report 20930316 (Version 2)
Quarter: 2022Q2

REPORT INFORMATION
  Report Type: Spontaneous
  Country: PL (occurrence: PL)
  Receive Date: 20220608
  Receipt Date: 20220610
  Transmission Date: 20220721
  Serious: Yes (Death, Other)
  Sender: FDA-Public Use
  Company Number: PL-CELLTRION INC.-2022PL008784

PATIENT

DRUGS (8)
  1. RITUXIMAB [Suspect]
     Active Substance: RITUXIMAB
     Indication: Diffuse large B-cell lymphoma
     Dosage: PHARMACEUTICAL DOSE FORM: UNKNOWN
     Route: 065
  2. RITUXIMAB [Suspect]
     Active Substance: RITUXIMAB
     Dosage: ADDITIONALLY RITUXIMAB (100% DOSE) WAS GIVEN.
  3. VINCRISTINE [Suspect]
     Active Substance: VINCRISTINE
     Indication: Diffuse large B-cell lymphoma
     Dosage: (50% DOSES) (DEXAMETHASONE, METHOTREXATE, VINCRISTINE,IFOSFAMIDE, CYTARABINE, ETOPOSIDE)
  4. METHOTREXATE [Suspect]
     Active Substance: METHOTREXATE
     Indication: Diffuse large B-cell lymphoma
     Dosage: (50% DOSES) (DEXAMETHASONE, METHOTREXATE, VINCRISTINE,IFOSFAMIDE, CYTARABINE, ETOPOSIDE)
  5. CYTARABINE [Suspect]
     Active Substance: CYTARABINE
     Indication: Diffuse large B-cell lymphoma
     Dosage: (50% DOSES) (DEXAMETHASONE, METHOTREXATE, VINCRISTINE,IFOSFAMIDE, CYTARABINE, ETOPOSIDE)
  6. DEXAMETHASONE [Suspect]
     Active Substance: DEXAMETHASONE
     Indication: Diffuse large B-cell lymphoma
     Dosage: (50% DOSES) (DEXAMETHASONE, METHOTREXATE, VINCRISTINE,IFOSFAMIDE, CYTARABINE, ETOPOSIDE)
  7. IFOSFAMIDE [Suspect]
     Active Substance: IFOSFAMIDE
     Indication: Diffuse large B-cell lymphoma
     Dosage: (50% DOSES) (DEXAMETHASONE, METHOTREXATE, VINCRISTINE,IFOSFAMIDE, CYTARABINE, ETOPOSIDE)
  8. ETOPOSIDE [Suspect]
     Active Substance: ETOPOSIDE
     Indication: Diffuse large B-cell lymphoma
     Dosage: (50% DOSES) (DEXAMETHASONE, METHOTREXATE, VINCRISTINE,IFOSFAMIDE, CYTARABINE, ETOPOSIDE)

REACTIONS (3)
  - Cardiovascular insufficiency [Fatal]
  - Systemic infection [Unknown]
  - Condition aggravated [Unknown]
